FAERS Safety Report 7488507-4 (Version None)
Quarter: 2011Q2

REPORT INFORMATION
  Report Type: 
  Country: None (occurrence: None)
  Receive Date: 20110518
  Receipt Date: 20110513
  Transmission Date: 20111010
  Serious: Yes (Hospitalization, Disabling, Other)
  Sender: FDA-Public Use
  Company Number: US-MERCK-1012USA01316

PATIENT
  Age: 68 Year
  Sex: Female

DRUGS (3)
  1. VITAMINS (UNSPECIFIED) [Concomitant]
     Route: 065
  2. FOSAMAX [Suspect]
     Indication: OSTEOPOROSIS
     Route: 048
     Dates: start: 20020101, end: 20070225
  3. FOSAMAX PLUS D [Suspect]
     Indication: OSTEOPOROSIS
     Route: 048
     Dates: start: 20070226, end: 20090501

REACTIONS (28)
  - SCOLIOSIS [None]
  - ABDOMINAL PAIN LOWER [None]
  - JOINT EFFUSION [None]
  - SWELLING [None]
  - RENAL CYST [None]
  - ARTHRALGIA [None]
  - FEMUR FRACTURE [None]
  - SPINAL OSTEOARTHRITIS [None]
  - METASTASES TO LIVER [None]
  - MULTIPLE FRACTURES [None]
  - METASTATIC NEOPLASM [None]
  - GASTROOESOPHAGEAL REFLUX DISEASE [None]
  - HEPATIC LESION [None]
  - OSTEOPENIA [None]
  - ILEUS [None]
  - OSTEOPOROSIS [None]
  - TIBIA FRACTURE [None]
  - TOOTH FRACTURE [None]
  - SINUSITIS [None]
  - RHEUMATOID ARTHRITIS [None]
  - ROTATOR CUFF SYNDROME [None]
  - ARTHROPATHY [None]
  - HEPATIC CYST [None]
  - FIBULA FRACTURE [None]
  - DIABETES MELLITUS [None]
  - BONE DENSITY DECREASED [None]
  - BACK PAIN [None]
  - RIB FRACTURE [None]
